APPROVED DRUG PRODUCT: TOTECT
Active Ingredient: DEXRAZOXANE HYDROCHLORIDE
Strength: EQ 500MG BASE/VIAL **Federal Register determination that product was not discontinued or withdrawn for safety or effectiveness reasons**
Dosage Form/Route: INJECTABLE;INJECTION
Application: N022025 | Product #001
Applicant: CLINIGEN INC
Approved: Sep 6, 2007 | RLD: Yes | RS: No | Type: DISCN